FAERS Safety Report 7952045-2 (Version None)
Quarter: 2011Q4

REPORT INFORMATION
  Report Type: 
  Country: None (occurrence: None)
  Receive Date: 20111201
  Receipt Date: 20111116
  Transmission Date: 20120403
  Serious: Yes (Death)
  Sender: FDA-Public Use
  Company Number: IL-WATSON-2011-20457

PATIENT
  Age: 53 Year
  Sex: Female

DRUGS (5)
  1. DOCETAXEL [Suspect]
     Indication: BREAST CANCER
  2. CAPECITABINE [Suspect]
     Indication: BREAST CANCER
  3. TAMOXIFEN CITRATE [Suspect]
     Indication: BREAST CANCER
  4. PACLITAXEL [Suspect]
     Indication: BREAST CANCER
  5. LETROZOLE (UNKNOWN) [Suspect]
     Indication: BREAST CANCER

REACTIONS (2)
  - HEPATIC FAILURE [None]
  - LIVER SCAN ABNORMAL [None]
